FAERS Safety Report 26106032 (Version 1)
Quarter: 2025Q4

REPORT INFORMATION
  Report Type: Spontaneous
  Country: CN (occurrence: CN)
  Receive Date: 20251201
  Receipt Date: 20251201
  Transmission Date: 20260118
  Serious: Yes (Hospitalization)
  Sender: SANOFI AVENTIS
  Company Number: CN-SA-2025SA354712

PATIENT
  Age: 8 Year

DRUGS (1)
  1. DUPIXENT [Suspect]
     Active Substance: DUPILUMAB
     Dosage: 600 MG, 1X
     Route: 065
     Dates: start: 20251017, end: 20251017

REACTIONS (3)
  - Pyrexia [Not Recovered/Not Resolved]
  - Lymphadenopathy [Unknown]
  - Infection [Unknown]

NARRATIVE: CASE EVENT DATE: 20251113
